FAERS Safety Report 13032806 (Version 2)
Quarter: 2016Q4

REPORT INFORMATION
  Report Type: Report from Study
  Country: US (occurrence: US)
  Receive Date: 20161215
  Receipt Date: 20161229
  Transmission Date: 20170207
  Serious: Yes (Death)
  Sender: FDA-Public Use
  Company Number: US-ACTELION-A-US2016-146896

PATIENT
  Age: 76 Year
  Sex: Male

DRUGS (14)
  1. DALIRESP [Concomitant]
     Active Substance: ROFLUMILAST
     Dosage: 500 MCG, QD
     Route: 048
  2. ACYCLOVIR. [Concomitant]
     Active Substance: ACYCLOVIR
     Dosage: 1 TABLET, BID FOR 10 DAYS
     Route: 048
  3. ASPIRIN. [Concomitant]
     Active Substance: ASPIRIN
     Dosage: 81 MG, QD
     Route: 048
  4. SYMBICORT [Concomitant]
     Active Substance: BUDESONIDE\FORMOTEROL FUMARATE DIHYDRATE
     Dosage: 160 MCG, 2 PUFFS, BID
     Route: 055
  5. DEXMETHASONE [Concomitant]
     Active Substance: DEXAMETHASONE
     Dosage: 4 MG, 10 TABS ONCE A WEEK
     Route: 048
  6. BUPROPION. [Concomitant]
     Active Substance: BUPROPION
     Dosage: 1 TAB QD
     Route: 048
  7. VELCADE [Concomitant]
     Active Substance: BORTEZOMIB
     Dosage: 3.5 MG, UNK
     Route: 042
  8. REVLIMID [Concomitant]
     Active Substance: LENALIDOMIDE
     Dosage: 15 MG, UNK
     Route: 048
  9. OPSUMIT [Suspect]
     Active Substance: MACITENTAN
     Indication: PULMONARY ARTERIAL HYPERTENSION
     Dosage: 10 MG, QD
     Route: 048
     Dates: start: 20150209, end: 20161119
  10. COMBIVENT [Concomitant]
     Active Substance: ALBUTEROL SULFATE\IPRATROPIUM BROMIDE
     Dosage: 20 MCG, 1 PUFF QID
     Route: 055
  11. LASIX [Concomitant]
     Active Substance: FUROSEMIDE
     Dosage: 20 MG, QD
     Route: 048
  12. TRAZODONE [Concomitant]
     Active Substance: TRAZODONE HYDROCHLORIDE
     Dosage: 1 TABLET, AFTER MEALS
     Route: 048
  13. LORAZEPAM. [Concomitant]
     Active Substance: LORAZEPAM
     Dosage: 1 TABLET, QPM
     Route: 048
  14. PROZAC [Concomitant]
     Active Substance: FLUOXETINE HYDROCHLORIDE
     Dosage: 40 MG, QD

REACTIONS (5)
  - Chronic obstructive pulmonary disease [Fatal]
  - Emphysema [Fatal]
  - Respiratory failure [Fatal]
  - Plasma cell myeloma [Fatal]
  - Pulmonary embolism [Fatal]
